FAERS Safety Report 18895901 (Version 3)
Quarter: 2021Q1

REPORT INFORMATION
  Report Type: Report from Study
  Country: RO (occurrence: RO)
  Receive Date: 20210216
  Receipt Date: 20210312
  Transmission Date: 20210420
  Serious: Yes (Death, Other)
  Sender: FDA-Public Use
  Company Number: RO-BIOGEN-2021BI00977536

PATIENT
  Age: 2 Year
  Sex: Female
  Weight: 9.8 kg

DRUGS (1)
  1. SPINRAZA [Suspect]
     Active Substance: NUSINERSEN
     Indication: SPINAL MUSCULAR ATROPHY
     Route: 037
     Dates: start: 201810, end: 202008

REACTIONS (3)
  - Respiratory arrest [Recovered/Resolved]
  - Lung disorder [Fatal]
  - Respiratory failure [Fatal]

NARRATIVE: CASE EVENT DATE: 201811
